FAERS Safety Report 11767511 (Version 1)
Quarter: 2015Q4

REPORT INFORMATION
  Report Type: Report from Study
  Country: PL (occurrence: PL)
  Receive Date: 20151123
  Receipt Date: 20151123
  Transmission Date: 20160304
  Serious: Yes (Other)
  Sender: FDA-Public Use
  Company Number: PL-MYLANLABS-2015M1041122

PATIENT

DRUGS (4)
  1. MYCOPHENOLATE MOFETIL. [Suspect]
     Active Substance: MYCOPHENOLATE MOFETIL
     Indication: TRANSPLANT
     Route: 065
  2. TACROLIMUS. [Suspect]
     Active Substance: TACROLIMUS
     Indication: TRANSPLANT
     Route: 065
  3. BASILIXIMAB [Suspect]
     Active Substance: BASILIXIMAB
     Indication: TRANSPLANT
     Route: 065
  4. PREDNISONE. [Suspect]
     Active Substance: PREDNISONE
     Indication: TRANSPLANT
     Route: 065

REACTIONS (2)
  - Ventricular remodelling [Unknown]
  - Dyslipidaemia [Unknown]
